FAERS Safety Report 15116055 (Version 1)
Quarter: 2018Q3

REPORT INFORMATION
  Report Type: Spontaneous
  Country: US (occurrence: US)
  Receive Date: 20180706
  Receipt Date: 20180706
  Transmission Date: 20181010
  Serious: No
  Sender: FDA-Public Use
  Company Number: US-ELI_LILLY_AND_COMPANY-US201807002622

PATIENT

DRUGS (1)
  1. ATOMOXETINE HYDROCHLORIDE 40MG [Suspect]
     Active Substance: ATOMOXETINE HYDROCHLORIDE
     Indication: PRODUCT USED FOR UNKNOWN INDICATION
     Dosage: UNK, UNKNOWN
     Route: 048

REACTIONS (6)
  - Aggression [Unknown]
  - Impulsive behaviour [Unknown]
  - Restlessness [Unknown]
  - Defiant behaviour [Unknown]
  - Psychomotor hyperactivity [Unknown]
  - Drug ineffective [Unknown]
